FAERS Safety Report 13043150 (Version 2)
Quarter: 2017Q1

REPORT INFORMATION
  Report Type: Spontaneous
  Country: JP (occurrence: JP)
  Receive Date: 20161219
  Receipt Date: 20170116
  Transmission Date: 20170428
  Serious: Yes (Other)
  Sender: FDA-Public Use
  Company Number: JP-009507513-1612JPN008901

PATIENT
  Age: 55 Year
  Sex: Male

DRUGS (3)
  1. HERBAL NOS [Concomitant]
     Active Substance: HERBALS
     Dosage: AN AS-NEEDED BASIS
  2. PREMINENT TABLETS LD [Concomitant]
     Active Substance: HYDROCHLOROTHIAZIDE\LOSARTAN POTASSIUM
     Route: 048
  3. GLACTIV [Suspect]
     Active Substance: SITAGLIPTIN
     Indication: TYPE 2 DIABETES MELLITUS
     Dosage: 50 MG, ONCE A DAY; STRENGHT REPORTED AS 12.5MG,25MG,50MG,100MG.
     Route: 048

REACTIONS (1)
  - Blood creatine phosphokinase increased [Not Recovered/Not Resolved]

NARRATIVE: CASE EVENT DATE: 2016
